FAERS Safety Report 9255783 (Version 1)
Quarter: 2013Q2

REPORT INFORMATION
  Report Type: Spontaneous
  Country: CA (occurrence: CA)
  Receive Date: 20130425
  Receipt Date: 20130425
  Transmission Date: 20140414
  Serious: Yes (Death, Hospitalization, Other)
  Sender: FDA-Public Use
  Company Number: CA-B.I. PHARMACEUTICALS,INC./RIDGEFIELD-2013-CN-00694CN

PATIENT
  Age: 83 Year
  Sex: Female

DRUGS (6)
  1. PRADAXA [Suspect]
     Indication: ATRIAL FIBRILLATION
     Dosage: 220 MG
     Dates: start: 2012, end: 20130204
  2. REMERON [Concomitant]
  3. SENOKOT [Concomitant]
  4. DIGOXIN [Concomitant]
  5. NORVASC [Concomitant]
  6. SINEMET [Concomitant]

REACTIONS (2)
  - Rectal haemorrhage [Fatal]
  - Ovarian cancer [Unknown]
